FAERS Safety Report 10012065 (Version 1)
Quarter: 2014Q1

REPORT INFORMATION
  Report Type: Spontaneous
  Country: US (occurrence: None)
  Receive Date: 20140312
  Receipt Date: 20140312
  Transmission Date: 20141002
  Serious: Yes (Hospitalization)
  Sender: FDA-Public Use
  Company Number: IMP_07502_2014

PATIENT
  Age: 71 Year
  Sex: Female

DRUGS (2)
  1. BUPROPION [Suspect]
     Indication: PRODUCT USED FOR UNKNOWN INDICATION
     Dosage: (DF [NOT PRESCRIBED AMOUNT] ORAL)
     Route: 048
  2. LAMOTRIGINE [Suspect]
     Indication: PRODUCT USED FOR UNKNOWN INDICATION
     Dosage: (DF [NOT PRESCRIBED AMOUNT] ORAL)
     Route: 048

REACTIONS (8)
  - Intentional overdose [None]
  - Mental status changes [None]
  - Unresponsive to stimuli [None]
  - Agitation [None]
  - Electrocardiogram QT prolonged [None]
  - Status epilepticus [None]
  - Disorientation [None]
  - Drug interaction [None]
